FAERS Safety Report 13750051 (Version 1)
Quarter: 2017Q3

REPORT INFORMATION
  Report Type: Spontaneous
  Country: US (occurrence: US)
  Receive Date: 20170713
  Receipt Date: 20170713
  Transmission Date: 20171127
  Serious: No
  Sender: FDA-Public Use
  Company Number: US-ASTELLAS-2016US047936

PATIENT
  Age: 75 Year
  Sex: Female

DRUGS (1)
  1. MYRBETRIQ [Suspect]
     Active Substance: MIRABEGRON
     Indication: MICTURITION URGENCY
     Route: 048
     Dates: start: 20161025, end: 20161204

REACTIONS (4)
  - Hypersensitivity [Recovered/Resolved]
  - Nausea [Recovered/Resolved]
  - Intentional product misuse [Unknown]
  - Discomfort [Recovered/Resolved]

NARRATIVE: CASE EVENT DATE: 201611
